FAERS Safety Report 5253177-2 (Version None)
Quarter: 2007Q1

REPORT INFORMATION
  Report Type: 
  Country: None (occurrence: None)
  Receive Date: 20070301
  Receipt Date: 20070219
  Transmission Date: 20070707
  Serious: Yes (Other)
  Sender: FDA-Public Use
  Company Number: PHEH2005US08238

PATIENT
  Age: 75 Year
  Sex: Female
  Weight: 58.956 kg

DRUGS (6)
  1. PROCARDIA XL [Concomitant]
     Indication: HYPERTENSION
  2. ENALAPRIL MALEATE [Concomitant]
     Indication: HYPERTENSION
     Dosage: 10 MG, QD
     Route: 048
  3. GLUCOSAMINE [Concomitant]
     Indication: ARTHRITIS
     Route: 048
  4. VASOTEC [Concomitant]
     Indication: HYPERTENSION
     Dosage: 10 MG, QD
  5. ESTRADERM [Suspect]
     Dosage: UNK, UNK
     Route: 062
  6. PROVERA [Suspect]

REACTIONS (29)
  - ABDOMINAL PAIN LOWER [None]
  - ANXIETY [None]
  - BIOPSY ENDOMETRIUM [None]
  - BOWEL MOVEMENT IRREGULARITY [None]
  - BREAST CANCER [None]
  - BREAST CYST [None]
  - BREAST RECONSTRUCTION [None]
  - CONDITION AGGRAVATED [None]
  - CONSTIPATION [None]
  - CYST ASPIRATION [None]
  - DEPRESSION [None]
  - DIZZINESS [None]
  - ENDOMETRIAL HYPERPLASIA [None]
  - FAMILIAL TREMOR [None]
  - FIBROADENOMA OF BREAST [None]
  - HYPERTENSION [None]
  - INTERVERTEBRAL DISC DEGENERATION [None]
  - ISCHAEMIA [None]
  - MALIGNANT MELANOMA IN SITU [None]
  - MAMMOGRAM ABNORMAL [None]
  - MENINGIOMA [None]
  - MODIFIED RADICAL MASTECTOMY [None]
  - NECK PAIN [None]
  - OSTEOPENIA [None]
  - OSTEOPOROSIS [None]
  - PALPITATIONS [None]
  - SKIN NEOPLASM EXCISION [None]
  - SPINAL OSTEOARTHRITIS [None]
  - THALAMOTOMY [None]
